FAERS Safety Report 7643015-2 (Version None)
Quarter: 2011Q3

REPORT INFORMATION
  Report Type: 
  Country: None (occurrence: None)
  Receive Date: 20110728
  Receipt Date: 20110722
  Transmission Date: 20111222
  Serious: Yes (Death, Hospitalization)
  Sender: FDA-Public Use
  Company Number: JP-MERCK-1102USA01455

PATIENT
  Age: 60 Year
  Sex: Male

DRUGS (1)
  1. DECADRON [Suspect]
     Indication: MULTIPLE MYELOMA
     Dosage: DAYS 1-4, 9-12, AND 17-20
     Route: 048

REACTIONS (2)
  - CYTOMEGALOVIRUS INFECTION [None]
  - AMOEBIC COLITIS [None]
